FAERS Safety Report 24636347 (Version 2)
Quarter: 2025Q1

REPORT INFORMATION
  Report Type: Spontaneous
  Country: US (occurrence: US)
  Receive Date: 20241119
  Receipt Date: 20250109
  Transmission Date: 20250409
  Serious: Yes (Hospitalization)
  Sender: ROCHE
  Company Number: US-ROCHE-10000132415

PATIENT
  Sex: Female

DRUGS (15)
  1. XOLAIR [Suspect]
     Active Substance: OMALIZUMAB
     Indication: Asthma
     Route: 058
  2. XOLAIR [Suspect]
     Active Substance: OMALIZUMAB
     Route: 058
  3. ARIPIPRAZOLE [Concomitant]
     Active Substance: ARIPIPRAZOLE
  4. BREZTRI AERO AER 160-9-4 [Concomitant]
  5. CETIRIZINE ? [Concomitant]
  6. FUROSEMIDE POW [Concomitant]
  7. LANTUS [Concomitant]
     Active Substance: INSULIN GLARGINE
  8. LISINOPRIL POW [Concomitant]
  9. LORAZEPAM POW [Concomitant]
  10. METFORMIN HC POW [Concomitant]
  11. MONTELUKAST POW [Concomitant]
  12. PANTOPRAZOLE POW [Concomitant]
  13. PIOGLITAZONE [Concomitant]
     Active Substance: PIOGLITAZONE
  14. PROAIR RESPI AEP [Concomitant]
  15. SIMVASTATIN POW [Concomitant]

REACTIONS (1)
  - Respiratory failure [Unknown]
